FAERS Safety Report 10333663 (Version 30)
Quarter: 2018Q3

REPORT INFORMATION
  Report Type: Report from Study
  Country: CA (occurrence: CA)
  Receive Date: 20140723
  Receipt Date: 20180911
  Transmission Date: 20181010
  Serious: Yes (Hospitalization, Other)
  Sender: FDA-Public Use
  Company Number: CA-ROCHE-1104662

PATIENT
  Age: 73 Year
  Sex: Male
  Weight: 55 kg

DRUGS (15)
  1. ACTEMRA [Suspect]
     Active Substance: TOCILIZUMAB
     Route: 042
     Dates: start: 20170927
  2. COUMADINE [Concomitant]
     Active Substance: WARFARIN SODIUM
     Dosage: EYE DROPS
     Route: 065
  3. ACTEMRA [Suspect]
     Active Substance: TOCILIZUMAB
     Route: 042
     Dates: start: 20150902
  4. TYLENOL ARTHRITIS PAIN [Concomitant]
     Active Substance: ACETAMINOPHEN
  5. ACTEMRA [Suspect]
     Active Substance: TOCILIZUMAB
     Indication: RHEUMATOID ARTHRITIS
     Route: 042
     Dates: start: 20120814
  6. FOLIC ACID. [Concomitant]
     Active Substance: FOLIC ACID
  7. OMEPRAZOLE. [Concomitant]
     Active Substance: OMEPRAZOLE
  8. ACTEMRA [Suspect]
     Active Substance: TOCILIZUMAB
     Route: 042
     Dates: start: 20151028
  9. PREGABALIN. [Concomitant]
     Active Substance: PREGABALIN
     Route: 065
  10. WARFARIN [Concomitant]
     Active Substance: WARFARIN
  11. ACTEMRA [Suspect]
     Active Substance: TOCILIZUMAB
     Route: 042
     Dates: start: 20150805
  12. ACTEMRA [Suspect]
     Active Substance: TOCILIZUMAB
     Route: 042
     Dates: start: 20150930
  13. HYDROMORPHONE [Concomitant]
     Active Substance: HYDROMORPHONE
     Route: 065
  14. FERROUS GLUCONATE [Concomitant]
     Active Substance: FERROUS GLUCONATE
  15. LOSEC [Concomitant]
     Active Substance: OMEPRAZOLE
     Route: 065

REACTIONS (35)
  - Corneal perforation [Not Recovered/Not Resolved]
  - Cataract [Unknown]
  - Pain in extremity [Recovering/Resolving]
  - International normalised ratio decreased [Unknown]
  - Pneumonia [Unknown]
  - Pain in extremity [Unknown]
  - Nasopharyngitis [Unknown]
  - Blood pressure increased [Unknown]
  - Oxygen saturation decreased [Unknown]
  - White blood cell count decreased [Unknown]
  - Haemoglobin decreased [Unknown]
  - Lymphocyte count decreased [Unknown]
  - Infected skin ulcer [Not Recovered/Not Resolved]
  - Weight decreased [Unknown]
  - Mobility decreased [Not Recovered/Not Resolved]
  - Blood pressure systolic increased [Unknown]
  - Hypersomnia [Not Recovered/Not Resolved]
  - Arthralgia [Not Recovered/Not Resolved]
  - Eye infection [Not Recovered/Not Resolved]
  - Weight abnormal [Not Recovered/Not Resolved]
  - Pain in extremity [Recovered/Resolved]
  - Pyrexia [Unknown]
  - Lethargy [Not Recovered/Not Resolved]
  - Localised infection [Recovered/Resolved]
  - Chronic obstructive pulmonary disease [Not Recovered/Not Resolved]
  - Retching [Not Recovered/Not Resolved]
  - Arthralgia [Recovering/Resolving]
  - Infusion site erythema [Recovering/Resolving]
  - Neutrophil count decreased [Unknown]
  - Cerebrovascular accident [Unknown]
  - Infusion site swelling [Recovering/Resolving]
  - Disability assessment scale score increased [Unknown]
  - Hypertension [Unknown]
  - Hypotension [Unknown]
  - Upper respiratory tract infection [Recovering/Resolving]

NARRATIVE: CASE EVENT DATE: 20120817
